FAERS Safety Report 7967007-9 (Version None)
Quarter: 2011Q4

REPORT INFORMATION
  Report Type: 
  Country: None (occurrence: None)
  Receive Date: 20111207
  Receipt Date: 20111207
  Transmission Date: 20120403
  Serious: No
  Sender: FDA-Public Use
  Company Number: None

PATIENT
  Age: 55 Year
  Sex: Female
  Weight: 95 kg

DRUGS (2)
  1. ZOLPIDEM [Suspect]
     Indication: INSOMNIA
  2. FLUOXETINE [Suspect]
     Indication: DEPRESSION

REACTIONS (3)
  - RASH [None]
  - URTICARIA [None]
  - PRURITUS [None]
